FAERS Safety Report 5821005-X (Version None)
Quarter: 2008Q3

REPORT INFORMATION
  Report Type: 
  Country: None (occurrence: None)
  Receive Date: 20080724
  Receipt Date: 20080714
  Transmission Date: 20090109
  Serious: Yes (Hospitalization)
  Sender: FDA-Public Use
  Company Number: US-JNJFOC-20080703709

PATIENT
  Sex: Female
  Weight: 100.25 kg

DRUGS (9)
  1. FENTANYL TRANSDERMAL SYSTEM [Suspect]
     Indication: MIGRAINE
     Route: 062
  2. LITHIUM [Concomitant]
     Route: 048
  3. LITHIUM [Concomitant]
     Indication: BIPOLAR DISORDER
     Dosage: IN THE MORNING
     Route: 048
  4. CELEXA [Concomitant]
     Indication: DEPRESSION
     Route: 048
  5. LAMICTAL [Concomitant]
     Route: 048
  6. LAMICTAL [Concomitant]
     Indication: BIPOLAR DISORDER
     Dosage: IN THE MORNING
     Route: 048
  7. TRAZODONE HCL [Concomitant]
     Indication: SLEEP DISORDER
     Route: 048
  8. REQUIP [Concomitant]
     Indication: RESTLESS LEGS SYNDROME
     Route: 048
  9. NEXIUM [Concomitant]
     Indication: GASTRITIS
     Route: 048

REACTIONS (3)
  - DISSOCIATION [None]
  - HEADACHE [None]
  - WRONG TECHNIQUE IN DRUG USAGE PROCESS [None]
